FAERS Safety Report 21596056 (Version 6)
Quarter: 2023Q2

REPORT INFORMATION
  Report Type: Report from Study
  Country: US (occurrence: US)
  Receive Date: 20221115
  Receipt Date: 20230404
  Transmission Date: 20230722
  Serious: Yes (Hospitalization, Other)
  Sender: FDA-Public Use
  Company Number: US-002147023-NVSC2022US253529

PATIENT
  Age: 49 Year
  Sex: Female

DRUGS (1)
  1. KESIMPTA [Suspect]
     Active Substance: OFATUMUMAB
     Indication: Relapsing multiple sclerosis
     Dosage: UNK
     Route: 065
     Dates: start: 20220818

REACTIONS (10)
  - Pneumonia [Unknown]
  - Influenza [Unknown]
  - Loss of consciousness [Unknown]
  - Multiple sclerosis relapse [Unknown]
  - Hypoaesthesia [Recovered/Resolved]
  - Sensory loss [Unknown]
  - Fall [Unknown]
  - Foot fracture [Unknown]
  - Skin discolouration [Unknown]
  - Peripheral swelling [Unknown]

NARRATIVE: CASE EVENT DATE: 20221211
